FAERS Safety Report 13607799 (Version 2)
Quarter: 2017Q2

REPORT INFORMATION
  Report Type: Spontaneous
  Country: US (occurrence: US)
  Receive Date: 20170602
  Receipt Date: 20170609
  Transmission Date: 20170830
  Serious: Yes (Hospitalization)
  Sender: FDA-Public Use
  Company Number: US-NEPHRON PHARMACEUTICALS CORPORATION-2021482

PATIENT
  Age: 35 Year
  Sex: Female
  Weight: 126.36 kg

DRUGS (1)
  1. IPRATROPIUM BROMIDE AND ALBUTEROL SULFATE [Suspect]
     Active Substance: ALBUTEROL SULFATE\IPRATROPIUM BROMIDE
     Indication: ASTHMA
     Route: 055

REACTIONS (7)
  - Loss of consciousness [Recovered/Resolved]
  - Heart rate increased [Recovered/Resolved]
  - Asthma [Recovered/Resolved]
  - Lung infection [Recovered/Resolved]
  - Cyanosis [Recovered/Resolved]
  - Hospitalisation [Recovered/Resolved]
  - Musculoskeletal pain [Recovered/Resolved]

NARRATIVE: CASE EVENT DATE: 20170520
